FAERS Safety Report 7294372-0 (Version None)
Quarter: 2011Q1

REPORT INFORMATION
  Report Type: 
  Country: None (occurrence: None)
  Receive Date: 20110215
  Receipt Date: 20110203
  Transmission Date: 20110831
  Serious: Yes (Other)
  Sender: FDA-Public Use
  Company Number: GB-AMGEN-GBRCT2011007639

PATIENT
  Age: 14 Year
  Sex: Female
  Weight: 41.9 kg

DRUGS (3)
  1. ETANERCEPT [Suspect]
     Indication: PSORIATIC ARTHROPATHY
     Dosage: 25 MG, QWK
     Route: 058
     Dates: start: 20040916
  2. ETANERCEPT [Suspect]
     Dosage: 16.4 MG, QWK
     Dates: start: 20060825
  3. PIROXICAM [Concomitant]
     Dosage: 20 MG, 1X/DAY
     Route: 048
     Dates: start: 20051101

REACTIONS (1)
  - MENSTRUATION IRREGULAR [None]
